FAERS Safety Report 9788477 (Version 2)
Quarter: 2014Q1

REPORT INFORMATION
  Report Type: Spontaneous
  Country: GB (occurrence: GB)
  Receive Date: 20131230
  Receipt Date: 20140320
  Transmission Date: 20141002
  Serious: Yes (Other)
  Sender: FDA-Public Use
  Company Number: US-ASTRAZENECA-2013SE94364

PATIENT
  Age: 61 Year
  Sex: Female
  Weight: 145 kg

DRUGS (18)
  1. CANDESARTAN [Suspect]
     Indication: PRODUCT USED FOR UNKNOWN INDICATION
     Dosage: UNK
     Route: 048
     Dates: start: 20131209
  2. ZOPICLONE [Concomitant]
     Dosage: UNK
     Dates: start: 20131004
  3. AMOXICILLIN [Concomitant]
     Dosage: UNK
     Dates: start: 20131104, end: 20131114
  4. AMOXICILLIN [Concomitant]
     Dosage: UNK
     Dates: start: 20131125, end: 20131205
  5. AVAMYS [Concomitant]
     Dosage: UNK
     Dates: start: 20131004
  6. BENDROFLUMETHIAZIDE [Concomitant]
     Dosage: UNK
     Dates: start: 20130827
  7. CARBOCISTEINE [Concomitant]
     Dosage: UNK
     Dates: start: 20131104
  8. CARBOMER [Concomitant]
     Dosage: UNK
     Dates: start: 20131104
  9. CETIRIZINE [Concomitant]
     Dosage: UNK
     Dates: start: 20130827
  10. CLENIL MODULITE [Concomitant]
     Dosage: UNK
     Dates: start: 20131104
  11. CODEINE PHOSPHATE [Concomitant]
     Dosage: UNK
     Dates: start: 20130827
  12. DOXYCYCLINE [Concomitant]
     Dosage: UNK
     Dates: start: 20130910, end: 20130924
  13. LEVOTHYROXINE [Concomitant]
     Dosage: UNK
     Dates: start: 20130827
  14. OMEPRAZOLE [Concomitant]
     Dosage: UNK
     Dates: start: 20131010
  15. OXIS [Concomitant]
     Dosage: UNK
     Dates: start: 20131125
  16. RAMIPRIL [Concomitant]
     Dosage: UNK
     Dates: start: 20130827
  17. SALBUTAMOL [Concomitant]
     Dosage: UNK
     Dates: start: 20130916, end: 20130917
  18. SALBUTAMOL [Concomitant]
     Dosage: UNK
     Dates: start: 20131104, end: 20131204

REACTIONS (2)
  - Anxiety [Recovered/Resolved]
  - Agitation [Recovered/Resolved]
